FAERS Safety Report 17520279 (Version 1)
Quarter: 2020Q1

REPORT INFORMATION
  Report Type: Spontaneous
  Country: IT (occurrence: IT)
  Receive Date: 20200309
  Receipt Date: 20200309
  Transmission Date: 20200409
  Serious: Yes (Other)
  Sender: FDA-Public Use
  Company Number: IT-AMGEN-ITASP2020037881

PATIENT
  Sex: Female

DRUGS (7)
  1. ETANERCEPT [Suspect]
     Active Substance: ETANERCEPT
     Indication: RHEUMATOID ARTHRITIS
  2. TRUXIMA [Suspect]
     Active Substance: RITUXIMAB-ABBS
     Indication: RHEUMATOID ARTHRITIS
  3. TRUXIMA [Suspect]
     Active Substance: RITUXIMAB-ABBS
     Indication: CRYOGLOBULINAEMIA
     Dosage: 1000 MILLIGRAM, (EVERY OTHER WEEK)
     Route: 065
  4. PARACETAMOL [Concomitant]
     Active Substance: ACETAMINOPHEN
     Indication: PREMEDICATION
     Dosage: UNK
  5. METHOTREXATE. [Suspect]
     Active Substance: METHOTREXATE
     Indication: RHEUMATOID ARTHRITIS
     Dosage: 10 MILLIGRAM, QWK
     Route: 065
  6. METHOTREXATE. [Suspect]
     Active Substance: METHOTREXATE
     Indication: CRYOGLOBULINAEMIA
  7. ETANERCEPT [Suspect]
     Active Substance: ETANERCEPT
     Indication: CRYOGLOBULINAEMIA
     Dosage: 50 MILLIGRAM, (50 MG/WEEK)
     Route: 065

REACTIONS (3)
  - Hypersensitivity vasculitis [Recovered/Resolved]
  - Cryoglobulinaemia [Recovered/Resolved]
  - Disease recurrence [Recovered/Resolved]
